FAERS Safety Report 9820570 (Version 1)
Quarter: 2013Q4

REPORT INFORMATION
  Report Type: Spontaneous
  Country: US (occurrence: None)
  Receive Date: 20131028
  Receipt Date: 20131028
  Transmission Date: 20140711
  Serious: Yes (Other)
  Sender: FDA-Public Use
  Company Number: 2013US001717

PATIENT
  Age: 55 Year
  Sex: Female
  Weight: 95 kg

DRUGS (7)
  1. ICLUSIG [Suspect]
     Indication: CHRONIC MYELOID LEUKAEMIA
     Route: 048
  2. FOLIC ACID (FOLIC ACID) [Concomitant]
  3. INVEGA (PALIPERIDONE) [Concomitant]
  4. VALIUM (DIAZEPAM) [Concomitant]
  5. CYMBALTA (DULOXETINE HYDROCHLORIDE) [Concomitant]
  6. ACTIQ (FENTANYL CITRATE) [Concomitant]
  7. OXYCONTIN (OXYCODONE HYDROCHLORIDE) [Concomitant]

REACTIONS (4)
  - Gastrointestinal disorder [None]
  - Abdominal pain upper [None]
  - Vomiting [None]
  - Nausea [None]
